FAERS Safety Report 4446144-X (Version None)
Quarter: 2004Q3

REPORT INFORMATION
  Report Type: 
  Country: None (occurrence: None)
  Receive Date: 20040907
  Receipt Date: 20040827
  Transmission Date: 20050211
  Serious: Yes (Hospitalization)
  Sender: FDA-Public Use
  Company Number: FR-JNJFOC-20040809221

PATIENT
  Age: 75 Year
  Sex: Female

DRUGS (6)
  1. REMINYL [Suspect]
     Route: 049
     Dates: start: 20031101
  2. SELOKEN [Interacting]
     Indication: ATRIAL FIBRILLATION
     Dosage: 1 CP PER DAY
     Route: 049
     Dates: end: 20040706
  3. DIGOXIN [Interacting]
     Indication: ATRIAL FIBRILLATION
     Route: 049
     Dates: end: 20040706
  4. AUGMENTIN '250' [Concomitant]
     Route: 065
     Dates: end: 20040704
  5. AUGMENTIN '250' [Concomitant]
     Route: 065
     Dates: end: 20040704
  6. PARACETEMOL [Concomitant]
     Route: 065
     Dates: end: 20040705

REACTIONS (7)
  - BRADYARRHYTHMIA [None]
  - C-REACTIVE PROTEIN INCREASED [None]
  - CREATININE RENAL CLEARANCE DECREASED [None]
  - DRUG INTERACTION [None]
  - HYPOXIA [None]
  - LUNG DISORDER [None]
  - OVERDOSE [None]
